FAERS Safety Report 11468830 (Version 2)
Quarter: 2015Q3

REPORT INFORMATION
  Report Type: Spontaneous
  Country: CH (occurrence: CH)
  Receive Date: 20150908
  Receipt Date: 20150909
  Transmission Date: 20151125
  Serious: Yes (Hospitalization, Other)
  Sender: FDA-Public Use
  Company Number: CH-BRISTOL-MYERS SQUIBB COMPANY-BMS-2015-059007

PATIENT
  Age: 70 Year
  Sex: Female

DRUGS (1)
  1. ABILIFY [Suspect]
     Active Substance: ARIPIPRAZOLE
     Indication: PRODUCT USED FOR UNKNOWN INDICATION
     Dosage: 17.5 MG, QD
     Route: 065

REACTIONS (4)
  - Aspiration [Unknown]
  - Tachycardia [Unknown]
  - Blood sodium increased [Unknown]
  - Hypertension [Unknown]

NARRATIVE: CASE EVENT DATE: 20150706
